FAERS Safety Report 14914543 (Version 1)
Quarter: 2018Q2

REPORT INFORMATION
  Report Type: Spontaneous
  Country: US (occurrence: US)
  Receive Date: 20180518
  Receipt Date: 20180518
  Transmission Date: 20180711
  Serious: No
  Sender: FDA-Public Use
  Company Number: US-009507513-1805USA006590

PATIENT
  Age: 46 Year
  Sex: Female

DRUGS (4)
  1. LASIX [Concomitant]
     Active Substance: FUROSEMIDE
  2. DESOGEN [Suspect]
     Active Substance: DESOGESTREL\ETHINYL ESTRADIOL
     Dosage: ONE TABLET/DAILY
     Route: 048
     Dates: start: 2008
  3. POTASSIUM (UNSPECIFIED) [Concomitant]
     Active Substance: POTASSIUM
  4. DESOGEN [Suspect]
     Active Substance: DESOGESTREL\ETHINYL ESTRADIOL
     Dosage: UNK
     Route: 048
     Dates: start: 20180508

REACTIONS (1)
  - Vaginal haemorrhage [Recovered/Resolved]

NARRATIVE: CASE EVENT DATE: 20180510
